FAERS Safety Report 24024660 (Version 4)
Quarter: 2024Q3

REPORT INFORMATION
  Report Type: Report from Study
  Country: IT (occurrence: IT)
  Receive Date: 20240628
  Receipt Date: 20240710
  Transmission Date: 20241017
  Serious: No
  Sender: ROCHE
  Company Number: IT-ROCHE-3518097

PATIENT
  Age: 59 Year
  Sex: Female
  Weight: 62.0 kg

DRUGS (7)
  1. ALECTINIB [Suspect]
     Active Substance: ALECTINIB
     Indication: Lung cancer metastatic
     Route: 048
     Dates: start: 20230109
  2. KEPPRA [Concomitant]
     Active Substance: LEVETIRACETAM
     Indication: Depression
     Route: 048
     Dates: start: 20220811
  3. LYRICA [Concomitant]
     Active Substance: PREGABALIN
     Indication: Myalgia
     Route: 048
     Dates: start: 20230315
  4. MS CONTIN [Concomitant]
     Active Substance: MORPHINE SULFATE
     Route: 048
     Dates: start: 20230814
  5. DEXAMETHASONE [Concomitant]
     Active Substance: DEXAMETHASONE
     Indication: Myalgia
     Dosage: 64 GTT
     Route: 048
     Dates: start: 20230814
  6. ENOXAPARIN [Concomitant]
     Active Substance: ENOXAPARIN
     Indication: Diverticulitis intestinal perforated
     Route: 058
     Dates: start: 20231208, end: 20240120
  7. ALECTINIB [Concomitant]
     Active Substance: ALECTINIB
     Indication: Lung neoplasm malignant
     Dates: start: 20220812

REACTIONS (1)
  - Osteonecrosis [Not Recovered/Not Resolved]

NARRATIVE: CASE EVENT DATE: 20240219
